FAERS Safety Report 24419025 (Version 2)
Quarter: 2024Q4

REPORT INFORMATION
  Report Type: Spontaneous
  Country: CN (occurrence: CN)
  Receive Date: 20241009
  Receipt Date: 20241018
  Transmission Date: 20250115
  Serious: No
  Sender: ROCHE
  Company Number: CN-BoehringerIngelheim-2024-BI-004379

PATIENT
  Age: 59 Year
  Sex: Male

DRUGS (4)
  1. ALTEPLASE [Suspect]
     Active Substance: ALTEPLASE
     Indication: Myocardial infarction
     Dosage: STANDARD DOSE
     Route: 065
     Dates: start: 202111
  2. NOREPINEPHRINE [Concomitant]
     Active Substance: NOREPINEPHRINE\NOREPINEPHRINE BITARTRATE
     Indication: Product used for unknown indication
     Dosage: 160 UG/MIN
  3. DOPAMINE [Concomitant]
     Active Substance: DOPAMINE HYDROCHLORIDE
     Indication: Product used for unknown indication
     Dosage: 10 UG/MIN
  4. EPINEPHRINE [Concomitant]
     Active Substance: EPINEPHRINE
     Indication: Product used for unknown indication
     Dosage: 20 UG/MIN

REACTIONS (5)
  - General physical health deterioration [Unknown]
  - Blood pressure inadequately controlled [Unknown]
  - Faeces discoloured [Recovering/Resolving]
  - Oxygen saturation abnormal [Unknown]
  - Procedural complication [Unknown]

NARRATIVE: CASE EVENT DATE: 20211101
